FAERS Safety Report 6747246-5 (Version None)
Quarter: 2010Q2

REPORT INFORMATION
  Report Type: 
  Country: None (occurrence: None)
  Receive Date: 20100528
  Receipt Date: 20100521
  Transmission Date: 20101027
  Serious: Yes (Hospitalization)
  Sender: FDA-Public Use
  Company Number: A0784699A

PATIENT
  Age: 49 Year
  Sex: Female
  Weight: 137.7 kg

DRUGS (10)
  1. AVANDIA [Suspect]
     Indication: DIABETES MELLITUS
     Dosage: 8MG PER DAY
     Route: 048
  2. METFORMIN HYDROCHLORIDE [Concomitant]
  3. QUINAPRIL [Concomitant]
  4. ATENOLOL [Concomitant]
  5. XANAX [Concomitant]
  6. AMITRIPTYLINE [Concomitant]
  7. POTASSIUM CHLORIDE [Concomitant]
  8. LIPITOR [Concomitant]
  9. LASIX [Concomitant]
  10. HUMALOG [Concomitant]

REACTIONS (1)
  - MYOCARDIAL INFARCTION [None]
